FAERS Safety Report 10337068 (Version 5)
Quarter: 2014Q4

REPORT INFORMATION
  Report Type: Spontaneous
  Country: JP (occurrence: JP)
  Receive Date: 20140723
  Receipt Date: 20141006
  Transmission Date: 20150528
  Serious: Yes (Hospitalization)
  Sender: FDA-Public Use
  Company Number: JP-TAKEDA-2014TUS006398

PATIENT
  Age: 62 Year
  Sex: Male
  Weight: 70.6 kg

DRUGS (19)
  1. AMLODIN OD [Concomitant]
     Active Substance: AMLODIPINE BESYLATE
     Indication: HYPERTENSION
     Dosage: 20 MG, QD
     Route: 048
     Dates: start: 20140509, end: 20140623
  2. KREMEZIN [Concomitant]
     Active Substance: ACTIVATED CHARCOAL
     Indication: CHRONIC KIDNEY DISEASE
     Dosage: 6 MG, QD
     Route: 048
     Dates: start: 20140512
  3. ZOSYN [Suspect]
     Active Substance: PIPERACILLIN SODIUM\TAZOBACTAM SODIUM
     Indication: RENAL ABSCESS
     Dosage: 6.75 G, QD
     Route: 041
     Dates: start: 20140529, end: 20140602
  4. CARDENALIN [Concomitant]
     Active Substance: DOXAZOSIN MESYLATE
     Indication: HYPERTENSION
     Dosage: 1 MG, QD
     Route: 048
     Dates: start: 20140607, end: 20140623
  5. CLIDAMACIN [Suspect]
     Active Substance: CLINDAMYCIN\CLINDAMYCIN PHOSPHATE
     Indication: RENAL ABSCESS
  6. FLUITRAN [Concomitant]
     Active Substance: TRICHLORMETHIAZIDE
     Indication: OEDEMA DUE TO RENAL DISEASE
     Dosage: 2 MG, QD
     Route: 048
     Dates: start: 20140523, end: 20140603
  7. ZOSYN [Suspect]
     Active Substance: PIPERACILLIN SODIUM\TAZOBACTAM SODIUM
     Indication: LUNG ABSCESS
  8. PREDONINE [Concomitant]
     Active Substance: PREDNISOLONE\PREDNISOLONE ACETATE\PREDNISOLONE SODIUM SUCCINATE
     Dosage: 5 MG, QD
     Route: 048
     Dates: end: 20140612
  9. FEBURIC [Suspect]
     Active Substance: FEBUXOSTAT
     Indication: HYPERURICAEMIA
     Dosage: 10 MG, QD
     Route: 048
     Dates: start: 20140512, end: 20140619
  10. CEFTRIAXONE NA [Suspect]
     Active Substance: CEFTRIAXONE
     Indication: LUNG ABSCESS
  11. CEFTRIAXONE NA [Suspect]
     Active Substance: CEFTRIAXONE
     Indication: RENAL ABSCESS
     Dosage: 2 G, QD
     Route: 041
     Dates: start: 20140519, end: 20140528
  12. PARIET [Concomitant]
     Active Substance: RABEPRAZOLE SODIUM
     Indication: PROPHYLAXIS AGAINST GASTROINTESTINAL ULCER
     Dosage: 10 MG, QD
     Route: 048
     Dates: start: 20140509, end: 20140623
  13. LENDORMIN D [Concomitant]
     Active Substance: BROTIZOLAM
     Indication: INSOMNIA
     Dosage: 0.25 MG, QD
     Route: 048
     Dates: start: 20140516
  14. PREDONINE [Concomitant]
     Active Substance: PREDNISOLONE\PREDNISOLONE ACETATE\PREDNISOLONE SODIUM SUCCINATE
     Dosage: 2.5 MG, QD
     Route: 048
     Dates: start: 20140613, end: 20140623
  15. PREDONINE [Concomitant]
     Active Substance: PREDNISOLONE\PREDNISOLONE ACETATE\PREDNISOLONE SODIUM SUCCINATE
     Indication: ADRENAL DISORDER
     Dosage: 30 MG, QD
     Route: 048
     Dates: start: 20140428
  16. LASIX [Concomitant]
     Active Substance: FUROSEMIDE
     Indication: OEDEMA DUE TO RENAL DISEASE
     Dosage: 320 MG, QD
     Route: 048
     Dates: start: 20140429
  17. CLIDAMACIN [Suspect]
     Active Substance: CLINDAMYCIN\CLINDAMYCIN PHOSPHATE
     Indication: LUNG ABSCESS
     Dosage: 1800 MG, QD
     Route: 041
     Dates: start: 20140519, end: 20140528
  18. ONEALFA [Concomitant]
     Active Substance: ALFACALCIDOL
     Indication: OSTEOPOROSIS
     Dosage: 0.50 ?G, QD
     Route: 048
     Dates: start: 20140611, end: 20140623
  19. CALCIUM CARBONATE. [Concomitant]
     Active Substance: CALCIUM CARBONATE
     Indication: HYPOCALCAEMIA
     Dosage: 9 G, QD
     Route: 048
     Dates: start: 20140623

REACTIONS (6)
  - Neutrophil count decreased [Unknown]
  - Hypersensitivity [None]
  - Blood alkaline phosphatase increased [Recovering/Resolving]
  - Gamma-glutamyltransferase increased [Not Recovered/Not Resolved]
  - Drug eruption [Unknown]
  - Eosinophilia [Recovered/Resolved]

NARRATIVE: CASE EVENT DATE: 20140609
